FAERS Safety Report 24830324 (Version 1)
Quarter: 2025Q1

REPORT INFORMATION
  Report Type: Spontaneous
  Country: US (occurrence: None)
  Receive Date: 20250109
  Receipt Date: 20250109
  Transmission Date: 20250408
  Serious: Yes (Other)
  Sender: FDA-CTU
  Company Number: None

PATIENT
  Age: 49 Year
  Sex: Female

DRUGS (11)
  1. HYDROXYZINE HYDROCHLORIDE [Suspect]
     Active Substance: HYDROXYZINE HYDROCHLORIDE
     Dosage: 40 TABLETS TWICE A DAY ORAL
     Route: 048
     Dates: start: 20241024, end: 20241113
  2. HYDRALAZINE HYDROCHLORIDE [Suspect]
     Active Substance: HYDRALAZINE HYDROCHLORIDE
  3. ALBUTEROL SULFATE [Concomitant]
     Active Substance: ALBUTEROL SULFATE
  4. ZYRTEC [Concomitant]
     Active Substance: CETIRIZINE HYDROCHLORIDE
  5. EPINEPHRINE [Concomitant]
     Active Substance: EPINEPHRINE
  6. Fluticasone Propion-Salmeterol [Concomitant]
  7. LEVALBUTEROL [Concomitant]
     Active Substance: LEVALBUTEROL
  8. MONTELUKAST [Concomitant]
     Active Substance: MONTELUKAST
  9. Nebulizer and Compressor [Concomitant]
  10. ATENOLOL [Concomitant]
     Active Substance: ATENOLOL
  11. ZYRTEC [Concomitant]
     Active Substance: CETIRIZINE HYDROCHLORIDE

REACTIONS (2)
  - Product dispensing error [None]
  - Blood pressure increased [None]

NARRATIVE: CASE EVENT DATE: 20241024
